FAERS Safety Report 20166331 (Version 1)
Quarter: 2021Q4

REPORT INFORMATION
  Report Type: Spontaneous
  Country: CN (occurrence: CN)
  Receive Date: 20211209
  Receipt Date: 20211209
  Transmission Date: 20220303
  Serious: Yes (Other)
  Sender: FDA-Public Use
  Company Number: CN-BAYER-2021A262552

PATIENT
  Age: 80 Year
  Sex: Male
  Weight: 60 kg

DRUGS (3)
  1. AVELOX [Suspect]
     Active Substance: MOXIFLOXACIN HYDROCHLORIDE
     Indication: Pneumonia
     Dosage: 0.4 G, QD
     Route: 041
     Dates: start: 20211112, end: 20211117
  2. CEFIXIME [Concomitant]
     Active Substance: CEFIXIME
     Indication: Pneumonia
     Dosage: 50 MG, BID
     Route: 048
     Dates: start: 20211110, end: 20211117
  3. ISOSORBIDE MONONITRATE [Concomitant]
     Active Substance: ISOSORBIDE MONONITRATE
     Indication: Arteriosclerosis coronary artery
     Dosage: 20 MG, BID
     Route: 048
     Dates: start: 20211110, end: 20211117

REACTIONS (3)
  - Delirium [Recovering/Resolving]
  - Restlessness [Recovering/Resolving]
  - Screaming [Recovering/Resolving]

NARRATIVE: CASE EVENT DATE: 20211115
